FAERS Safety Report 23808423 (Version 2)
Quarter: 2024Q2

REPORT INFORMATION
  Report Type: Spontaneous
  Country: PT (occurrence: PT)
  Receive Date: 20240502
  Receipt Date: 20240620
  Transmission Date: 20240716
  Serious: Yes (Other)
  Sender: FDA-Public Use
  Company Number: PT-MYLANLABS-2024M1037767

PATIENT
  Age: 31 Year
  Sex: Male
  Weight: 76 kg

DRUGS (3)
  1. CLARITHROMYCIN [Suspect]
     Active Substance: CLARITHROMYCIN
     Indication: Pharyngitis
     Dosage: 1 DOSAGE FORM, BID (1 TABLET EVERY 12 HOURS ON THE FIRST DAY)
     Route: 048
     Dates: start: 20240415, end: 20240422
  2. CLARITHROMYCIN [Suspect]
     Active Substance: CLARITHROMYCIN
     Dosage: 1 DOSAGE FORM, QD (1 TABLET/DAY ON THE REMAINING DAYS)
     Route: 048
     Dates: start: 20240415, end: 20240422
  3. FLAGYL [Suspect]
     Active Substance: METRONIDAZOLE\METRONIDAZOLE HYDROCHLORIDE
     Indication: Pharyngitis
     Dosage: 500 MILLIGRAM, Q8H (2 TABLETS EVERY 8 HOURS)
     Route: 048
     Dates: start: 20240415, end: 20240422

REACTIONS (5)
  - Vision blurred [Recovered/Resolved]
  - Nausea [Recovered/Resolved]
  - Vomiting [Recovered/Resolved]
  - Dizziness [Recovered/Resolved]
  - Off label use [Unknown]

NARRATIVE: CASE EVENT DATE: 20240415
